FAERS Safety Report 6586625-6 (Version None)
Quarter: 2010Q1

REPORT INFORMATION
  Report Type: 
  Country: None (occurrence: None)
  Receive Date: 20100217
  Receipt Date: 20090330
  Transmission Date: 20100710
  Serious: Yes (Other)
  Sender: FDA-Public Use
  Company Number: US-ALLERGAN-0904319US

PATIENT
  Age: 36 Year
  Sex: Female

DRUGS (1)
  1. BOTOX COSMETIC [Suspect]
     Indication: SKIN WRINKLING
     Dosage: 40 UNITS, SINGLE
     Route: 030
     Dates: start: 20090314, end: 20090314

REACTIONS (9)
  - ASTHENIA [None]
  - DYSPNOEA [None]
  - EYELID PTOSIS [None]
  - HYPERSENSITIVITY [None]
  - INFLUENZA LIKE ILLNESS [None]
  - MIGRAINE [None]
  - PLEURAL EFFUSION [None]
  - SKIN WRINKLING [None]
  - SWELLING FACE [None]
